FAERS Safety Report 11373473 (Version 1)
Quarter: 2015Q3

REPORT INFORMATION
  Report Type: Spontaneous
  Country: TN (occurrence: None)
  Receive Date: 20150811
  Receipt Date: 20150811
  Transmission Date: 20151125
  Serious: Yes (Hospitalization, Other)
  Sender: FDA-Public Use
  Company Number: POI0581201500013

PATIENT
  Age: 56 Year
  Sex: Female

DRUGS (1)
  1. AZASAN [Suspect]
     Active Substance: AZATHIOPRINE
     Indication: CROHN^S DISEASE
     Dates: start: 2006, end: 2010

REACTIONS (6)
  - Abdominal adhesions [None]
  - Autoimmune disorder [None]
  - Hepatic cirrhosis [None]
  - Drug-induced liver injury [None]
  - Intestinal obstruction [None]
  - Toxicity to various agents [None]

NARRATIVE: CASE EVENT DATE: 20140307
